FAERS Safety Report 20477412 (Version 1)
Quarter: 2022Q1

REPORT INFORMATION
  Report Type: Spontaneous
  Country: US (occurrence: US)
  Receive Date: 20220215
  Receipt Date: 20220215
  Transmission Date: 20220423
  Serious: No
  Sender: FDA-Public Use
  Company Number: US-GLAXOSMITHKLINE-USCH2022006089

PATIENT

DRUGS (1)
  1. CHAPSTICK NOS [Suspect]
     Active Substance: AVOBENZONE\HOMOSALATE\OCTINOXATE\OCTISALATE\OCTOCRYLENE\OXYBENZONE\TITANIUM DIOXIDE\ZINC OXIDE
     Indication: Chapped lips
     Dosage: UNK

REACTIONS (4)
  - Oral discomfort [Unknown]
  - Lip swelling [Unknown]
  - Lip erythema [Unknown]
  - Lip pain [Unknown]

NARRATIVE: CASE EVENT DATE: 20220210
